FAERS Safety Report 6667603-5 (Version None)
Quarter: 2010Q2

REPORT INFORMATION
  Report Type: 
  Country: None (occurrence: None)
  Receive Date: 20100405
  Receipt Date: 20100329
  Transmission Date: 20101027
  Serious: Yes (Hospitalization, Other)
  Sender: FDA-Public Use
  Company Number: US-ELI_LILLY_AND_COMPANY-US201003007961

PATIENT
  Sex: Female

DRUGS (18)
  1. ZYPREXA [Suspect]
     Indication: DEPRESSION
     Dosage: UNK, DAILY (1/D)
     Dates: end: 20030203
  2. PROZAC [Suspect]
     Indication: DEPRESSION
     Dosage: UNK, OTHER
     Dates: start: 19920101, end: 19920101
  3. ZYPREXA ZYDIS [Suspect]
     Indication: DEPRESSION
     Dosage: 5 MG, DAILY (1/D)
     Dates: start: 20090101, end: 20100201
  4. ZYPREXA ZYDIS [Suspect]
     Dosage: 10 MG, DAILY (1/D)
     Dates: end: 20100201
  5. ZYPREXA ZYDIS [Suspect]
     Dosage: 15 MG, DAILY (1/D)
     Dates: end: 20100201
  6. ATIVAN [Concomitant]
     Dosage: 1 MG, OTHER
  7. LOPRESSOR [Concomitant]
     Dosage: 25 MG, 2/D
  8. SYNTHROID [Concomitant]
     Dosage: 25 UG, EACH MORNING
  9. AXID [Concomitant]
     Dosage: 150 MG, 2/D
  10. ACTONEL [Concomitant]
     Dosage: 150 MG, MONTHLY (1/M)
  11. FLEXERIL [Concomitant]
     Dosage: 10 MG, 3/D
  12. SYMBICORT [Concomitant]
     Dosage: 1 D/F, 2/D
  13. NASACORT [Concomitant]
     Dosage: 1 D/F, 2/D
  14. ALBUTEROL [Concomitant]
     Dosage: 1 D/F, OTHER
  15. IMITREX [Concomitant]
     Dosage: 100 MG, AS NEEDED
  16. CALCIUM WITH VITAMIN D [Concomitant]
     Dosage: 1 D/F, 3/D
  17. CYTOTEC [Concomitant]
     Dosage: 200 MG, 3/D
  18. MORPHINE [Concomitant]
     Dosage: 15 MG, 2/D

REACTIONS (23)
  - ACTIVITIES OF DAILY LIVING IMPAIRED [None]
  - ADVERSE DRUG REACTION [None]
  - AGITATION [None]
  - ASTHENIA [None]
  - BALANCE DISORDER [None]
  - DROOLING [None]
  - DRUG INEFFECTIVE [None]
  - DRUG TOXICITY [None]
  - DYSTONIA [None]
  - ELECTROLYTE IMBALANCE [None]
  - EXTRAPYRAMIDAL DISORDER [None]
  - FALL [None]
  - HEAD INJURY [None]
  - METABOLIC DISORDER [None]
  - OFF LABEL USE [None]
  - POSTURE ABNORMAL [None]
  - RADIAL NERVE PALSY [None]
  - RHABDOMYOLYSIS [None]
  - SALIVARY HYPERSECRETION [None]
  - SOMNOLENCE [None]
  - SURGERY [None]
  - SYNCOPE [None]
  - TRANSIENT ISCHAEMIC ATTACK [None]
